FAERS Safety Report 8623344-6 (Version None)
Quarter: 2012Q3

REPORT INFORMATION
  Report Type: 
  Country: None (occurrence: None)
  Receive Date: 20120824
  Receipt Date: 20120824
  Transmission Date: 20120928
  Serious: No
  Sender: FDA-Public Use
  Company Number: None

PATIENT
  Sex: Female

DRUGS (1)
  1. ENBREL [Suspect]
     Indication: PSORIASIS
     Dosage: 50 MG Q WEEK SQ
     Route: 058
     Dates: start: 20120509

REACTIONS (2)
  - DYSKINESIA [None]
  - MUSCLE SPASMS [None]
